FAERS Safety Report 9612512 (Version 2)
Quarter: 2014Q1

REPORT INFORMATION
  Report Type: Spontaneous
  Country: CA (occurrence: CA)
  Receive Date: 20131010
  Receipt Date: 20140206
  Transmission Date: 20141002
  Serious: Yes (Other)
  Sender: FDA-Public Use
  Company Number: CA-AMGEN-CANSP2013070660

PATIENT
  Age: 86 Year
  Sex: Female
  Weight: 65.76 kg

DRUGS (16)
  1. ENBREL [Suspect]
     Indication: PSORIASIS
     Dosage: 50 MG, 2 TIMES/WK
     Route: 058
     Dates: start: 20101012, end: 20130330
  2. HCTZ [Concomitant]
     Indication: HYPERTENSION
     Dosage: 25 MG, QD
     Route: 048
  3. COVERSYL PLUS                      /01421201/ [Concomitant]
     Indication: HYPERTENSION
     Dosage: 4 MG, QD
     Route: 048
  4. LEVOTHYROXINE SODIUM [Concomitant]
     Indication: HYPOTHYROIDISM
     Dosage: 0.1 MG, QD
     Route: 048
  5. LOSEC                              /00661201/ [Concomitant]
     Indication: GASTROOESOPHAGEAL REFLUX DISEASE
     Dosage: 20 MG, QD
     Route: 048
  6. COSOPT [Concomitant]
     Indication: GLAUCOMA
     Dosage: 0.5 UNK, BID
     Route: 048
  7. VITAMIN D                          /00107901/ [Concomitant]
     Dosage: 500 MG, QD
     Route: 048
  8. CALCIUM [Concomitant]
     Dosage: 1 PILL, QD
     Route: 048
  9. STELARA [Concomitant]
     Indication: PSORIASIS
     Dosage: 45 MG, UNK
     Dates: start: 20130410, end: 20130507
  10. ATORVASTATIN [Concomitant]
     Dosage: 10 MG, QD
  11. SOLIFENACIN [Concomitant]
     Dosage: 5 MG, QD
  12. ZOPICLONE [Concomitant]
     Dosage: 7.5 MG, 1/2 TABLET NIGHTLY
  13. ASPIRIN [Concomitant]
     Dosage: 85 MG, QD
  14. METFORMIN [Concomitant]
     Dosage: 500 MG, 1/2 TABLET BID
  15. VITAMIN B12                        /00056201/ [Concomitant]
     Dosage: UNK
  16. CITALOPRAM HYDROBROMIDE [Concomitant]
     Dosage: 20 MG, 1/2 TABLET QD

REACTIONS (8)
  - Adenocarcinoma of colon [Not Recovered/Not Resolved]
  - Coeliac artery stenosis [Unknown]
  - Drug ineffective [Unknown]
  - Polyp [Unknown]
  - Faeces hard [Unknown]
  - Constipation [Unknown]
  - Diverticulitis [Unknown]
  - Spinal osteoarthritis [Unknown]
